FAERS Safety Report 5057044-9 (Version None)
Quarter: 2006Q3

REPORT INFORMATION
  Report Type: 
  Country: None (occurrence: None)
  Receive Date: 20060718
  Receipt Date: 20060706
  Transmission Date: 20061208
  Serious: Yes (Hospitalization)
  Sender: FDA-Public Use
  Company Number: 2006-145297-NL

PATIENT
  Age: 92 Year
  Sex: Female

DRUGS (8)
  1. MIRTAZAPINE [Suspect]
     Indication: DEPRESSION
     Dosage: DF
     Dates: start: 20060607, end: 20060612
  2. BISOPROLOL FUMARATE [Concomitant]
  3. FUROSEMIDE [Concomitant]
  4. FLUINDIONE [Concomitant]
  5. POTASSIUM CHLORIDE [Concomitant]
  6. ASPIRIN [Concomitant]
  7. AMPHOTERICIN B [Concomitant]
  8. OXYGEN [Concomitant]

REACTIONS (2)
  - CYTOLYTIC HEPATITIS [None]
  - JAUNDICE CHOLESTATIC [None]
